FAERS Safety Report 23397911 (Version 1)
Quarter: 2024Q1

REPORT INFORMATION
  Report Type: Spontaneous
  Country: US (occurrence: US)
  Receive Date: 20240112
  Receipt Date: 20240112
  Transmission Date: 20240410
  Serious: Yes (Other)
  Sender: FDA-Public Use
  Company Number: US-009507513-2401USA005744

PATIENT
  Age: 70 Year
  Sex: Male

DRUGS (2)
  1. TICE BCG [Suspect]
     Active Substance: BACILLUS CALMETTE-GUERIN SUBSTRAIN TICE LIVE ANTIGEN
     Indication: Bladder cancer stage 0, with cancer in situ
     Dosage: UNK
     Route: 043
     Dates: start: 2021
  2. TICE BCG [Suspect]
     Active Substance: BACILLUS CALMETTE-GUERIN SUBSTRAIN TICE LIVE ANTIGEN
     Dosage: MAINTENANCE
     Route: 043
     Dates: start: 2021

REACTIONS (2)
  - Bladder necrosis [Recovering/Resolving]
  - Mycobacterial infection [Recovering/Resolving]

NARRATIVE: CASE EVENT DATE: 20220101
